FAERS Safety Report 8216383-0 (Version None)
Quarter: 2012Q1

REPORT INFORMATION
  Report Type: 
  Country: None (occurrence: None)
  Receive Date: 20120316
  Receipt Date: 20120314
  Transmission Date: 20120608
  Serious: Yes (Hospitalization)
  Sender: FDA-Public Use
  Company Number: PHEH2011US07925

PATIENT
  Sex: Female

DRUGS (2)
  1. GLEEVEC [Suspect]
     Indication: CHRONIC MYELOID LEUKAEMIA
     Dosage: 300 MG, DAILY
     Route: 048
     Dates: start: 20111018
  2. GLEEVEC [Suspect]
     Dosage: 2 DF (100 MG IMATINIB), QD
     Route: 048
     Dates: end: 20120314

REACTIONS (5)
  - HEART RATE INCREASED [None]
  - NAUSEA [None]
  - PLEURAL EFFUSION [None]
  - CARDIAC DISORDER [None]
  - VOMITING [None]
